FAERS Safety Report 7964628-4 (Version None)
Quarter: 2011Q4

REPORT INFORMATION
  Report Type: 
  Country: None (occurrence: None)
  Receive Date: 20111208
  Receipt Date: 20111128
  Transmission Date: 20120403
  Serious: Yes (Hospitalization)
  Sender: FDA-Public Use
  Company Number: US-BAYER-2011-045502

PATIENT
  Age: 32 Year
  Sex: Female
  Weight: 75.283 kg

DRUGS (3)
  1. IBUPROFEN (ADVIL) [Concomitant]
     Dosage: 300 MG, PRN
     Dates: start: 20010101
  2. CALCIUM CARBONATE [Concomitant]
     Indication: DYSPEPSIA
     Dosage: UNK UNK, TIW
     Dates: start: 20080101, end: 20090101
  3. YAZ [Suspect]
     Indication: CONTRACEPTION
     Dosage: UNK
     Dates: start: 20070125, end: 20090925

REACTIONS (2)
  - GALLBLADDER DISORDER [None]
  - CHOLECYSTITIS ACUTE [None]
